FAERS Safety Report 4337552-6 (Version None)
Quarter: 2004Q1

REPORT INFORMATION
  Report Type: 
  Country: None (occurrence: None)
  Receive Date: 20040329
  Receipt Date: 20040119
  Transmission Date: 20041129
  Serious: No
  Sender: FDA-Public Use
  Company Number: USA031255350

PATIENT
  Age: 10 Year
  Sex: Male
  Weight: 30 kg

DRUGS (4)
  1. STRATTERA [Suspect]
     Indication: ATTENTION DEFICIT/HYPERACTIVITY DISORDER
     Dosage: 15 MG/DAY
     Dates: start: 20031220
  2. PROZAC [Suspect]
     Dosage: 30 MG/DAY
  3. TRILEPTAL [Concomitant]
  4. SEROQUEL [Concomitant]

REACTIONS (5)
  - ABNORMAL BEHAVIOUR [None]
  - AGGRESSION [None]
  - DRUG INTERACTION [None]
  - OPPOSITIONAL DEFIANT DISORDER [None]
  - WEIGHT INCREASED [None]
